FAERS Safety Report 15161134 (Version 1)
Quarter: 2018Q3

REPORT INFORMATION
  Report Type: Spontaneous
  Country: US (occurrence: US)
  Receive Date: 20180718
  Receipt Date: 20180718
  Transmission Date: 20181010
  Serious: No
  Sender: FDA-Public Use
  Company Number: US-JAZZ-2018-US-009119

PATIENT
  Sex: Female

DRUGS (7)
  1. REMERON [Concomitant]
     Active Substance: MIRTAZAPINE
  2. XYREM [Suspect]
     Active Substance: SODIUM OXYBATE
     Indication: PRODUCT USED FOR UNKNOWN INDICATION
     Dosage: 2.25 G, BID
     Route: 048
     Dates: start: 201605
  3. KLONOPIN [Concomitant]
     Active Substance: CLONAZEPAM
  4. XYREM [Suspect]
     Active Substance: SODIUM OXYBATE
     Dosage: UNKNOWN DOSE
     Route: 048
     Dates: end: 201711
  5. XYREM [Suspect]
     Active Substance: SODIUM OXYBATE
     Dosage: 3 G, TID
     Route: 048
  6. TIZANIDINE. [Concomitant]
     Active Substance: TIZANIDINE
  7. OXYCODONE [Concomitant]
     Active Substance: OXYCODONE

REACTIONS (1)
  - Stress [Unknown]
